FAERS Safety Report 25057711 (Version 1)
Quarter: 2025Q1

REPORT INFORMATION
  Report Type: Other
  Country: FR (occurrence: FR)
  Receive Date: 20250310
  Receipt Date: 20250310
  Transmission Date: 20250409
  Serious: Yes (Hospitalization)
  Sender: BIOCON
  Company Number: None

PATIENT

DRUGS (6)
  1. TRASTUZUMAB [Suspect]
     Active Substance: TRASTUZUMAB
     Indication: Adenocarcinoma of colon
     Dosage: 8 MILLIGRAM/KILOGRAM, QD (462 MG)
     Route: 042
     Dates: start: 20241231, end: 20241231
  2. TRASTUZUMAB [Suspect]
     Active Substance: TRASTUZUMAB
     Dosage: 6 MILLIGRAM/KILOGRAM, QD (336 MG)
     Route: 042
     Dates: start: 20250120, end: 20250120
  3. PERJETA [Suspect]
     Active Substance: PERTUZUMAB
     Indication: Adenocarcinoma of colon
     Dosage: 840 MILLIGRAM, QD (SOLUTION FOR DILUTION FOR INFUSION)
     Route: 042
     Dates: start: 20241231, end: 20241231
  4. PERJETA [Suspect]
     Active Substance: PERTUZUMAB
     Dosage: 420 MILLIGRAM, QD
     Route: 042
     Dates: start: 20250120, end: 20250120
  5. FLUOROURACIL [Concomitant]
     Active Substance: FLUOROURACIL
     Indication: Adenocarcinoma of colon
     Dosage: 2800 MILLIGRAM, QD
     Route: 042
     Dates: start: 20241231, end: 20241231
  6. OXALIPLATIN [Concomitant]
     Active Substance: OXALIPLATIN
     Indication: Adenocarcinoma of colon
     Dosage: 142.5 MILLIGRAM, QD
     Route: 042
     Dates: start: 20241231, end: 20241231

REACTIONS (1)
  - Acute kidney injury [Recovering/Resolving]

NARRATIVE: CASE EVENT DATE: 20250213
